FAERS Safety Report 4424310-7 (Version None)
Quarter: 2004Q3

REPORT INFORMATION
  Report Type: 
  Country: None (occurrence: None)
  Receive Date: 20040809
  Receipt Date: 20040527
  Transmission Date: 20050211
  Serious: Yes (Death, Life-Threatening)
  Sender: FDA-Public Use
  Company Number: S04-341-209

PATIENT
  Age: 51 Year
  Sex: Female

DRUGS (6)
  1. VELCADE [Suspect]
     Indication: MULTIPLE MYELOMA
     Dosage: IV BOLUS
     Route: 040
     Dates: start: 20040227, end: 20040401
  2. RANITIDINE [Concomitant]
  3. ALLOPURINOL [Concomitant]
  4. FENTANYL [Concomitant]
  5. DOMPERIDONE [Concomitant]
  6. ACETAMINOPHEN [Concomitant]

REACTIONS (8)
  - BACTERIAL INFECTION [None]
  - CHILLS [None]
  - CONFUSIONAL STATE [None]
  - GENERAL PHYSICAL HEALTH DETERIORATION [None]
  - PYREXIA [None]
  - RENAL IMPAIRMENT [None]
  - SEPSIS [None]
  - THERAPY NON-RESPONDER [None]
